FAERS Safety Report 19443520 (Version 1)
Quarter: 2021Q2

REPORT INFORMATION
  Report Type: Spontaneous
  Country: FR (occurrence: FR)
  Receive Date: 20210621
  Receipt Date: 20210621
  Transmission Date: 20210717
  Serious: Yes (Hospitalization, Other)
  Sender: FDA-Public Use
  Company Number: FR-PFIZER INC-2021660873

PATIENT
  Age: 80 Year
  Sex: Male
  Weight: 72 kg

DRUGS (13)
  1. ACTONEL [Concomitant]
     Active Substance: RISEDRONATE SODIUM
     Dosage: 1 DF, WEEKLY(1 AT 8AM FOR 84 DAYS
  2. ZYVOXID [Suspect]
     Active Substance: LINEZOLID
     Indication: DEVICE RELATED INFECTION
  3. CEREZYME [Suspect]
     Active Substance: IMIGLUCERASE
     Dosage: 10 DF EVERY 15 DAYS
     Dates: start: 20131213
  4. NORSET [Concomitant]
     Active Substance: MIRTAZAPINE
  5. SODIUM CHLORIDE. [Concomitant]
     Active Substance: SODIUM CHLORIDE
     Dosage: 1 DF, 2X/WEEK (ONE 0.9% RIGID BAG OF 250 ML AT 8 AM, ON WED AND SUN
     Route: 048
  6. LASILIX FAIBLE [Concomitant]
     Active Substance: FUROSEMIDE
     Dosage: 20 MG, 1X/DAY  AT 8 A.M., EVERY DAY FOR 84 DAYS
     Route: 048
  7. ZYVOXID [Suspect]
     Active Substance: LINEZOLID
     Indication: PROPIONIBACTERIUM INFECTION
  8. NEORECORMON [Concomitant]
     Active Substance: ERYTHROPOIETIN
     Dosage: 2000 IU, WEEKLY (AT 8 AM, FRIDAY, FOR 84 DAYS)
     Route: 058
  9. CALCIDOSE VITAMINE D [Concomitant]
     Active Substance: CALCIUM\CHOLECALCIFEROL
     Dosage: 1 DF, 2X/DAY (1 AT 8 AM, 1 IN THE EVENING AT 6 PM, EVERY DAY FOR 84 DAYS)
  10. DOLIPRANE [Concomitant]
     Active Substance: ACETAMINOPHEN
     Dosage: 500 MG, 3X/DAY(1 AT 8 AM, 1 AT NOON, 1 IN THE EVENING AT 6 PM, EVERY DAY FOR 84 DAYS
     Route: 048
  11. SERESTA [Concomitant]
     Active Substance: OXAZEPAM
     Dosage: 1 DF IN AT 8 AM, 1 AT NOON, 2 AT BEDTIME AT 8 PM, EVERY DAY
     Route: 048
  12. LAMALINE [ATROPA BELLADONNA EXTRACT;CAFFEINE;PAPAVER SOMNIFERUM TINCTU [Concomitant]
     Active Substance: ACETAMINOPHEN\BELLADONNA LEAF\CAFFEINE\OPIUM
     Dosage: 1 DF, 3X/DAY (1 AT 8 AM, 1 AT NOON, 1 IN THE EVENING AT 6 P.M., EVERY DAY FOR 84 DAYS)
     Route: 048
  13. MOVICOL [Concomitant]
     Active Substance: POLYETHYLENE GLYCOL 3350\POTASSIUM CHLORIDE\SODIUM BICARBONATE\SODIUM CHLORIDE
     Dosage: 1 DF, 3X/DAY (1 AT 8 A.M., 1 AT NOON, 1 IN THE EVENING AT 6 P.M, EVERY DAY FOR 84 DAYS)
     Route: 048

REACTIONS (4)
  - Postoperative wound infection [Unknown]
  - Device related infection [Unknown]
  - Product administration error [Unknown]
  - Pancytopenia [Unknown]

NARRATIVE: CASE EVENT DATE: 2021
